FAERS Safety Report 5020109-1 (Version None)
Quarter: 2006Q2

REPORT INFORMATION
  Report Type: 
  Country: None (occurrence: None)
  Receive Date: 20060607
  Receipt Date: 20050711
  Transmission Date: 20061013
  Serious: Yes (Other)
  Sender: FDA-Public Use
  Company Number: GB-ROCHE-410500

PATIENT
  Age: 42 Year
  Sex: Female

DRUGS (2)
  1. XENICAL [Suspect]
     Indication: DRUG USE FOR UNKNOWN INDICATION
     Route: 048
  2. XENICAL [Suspect]
     Dosage: TAKEN SPORADICALLY FOR 3 WEEKS APPROXIMATELY 2 YEARS AGO.
     Route: 048

REACTIONS (2)
  - DRUG ERUPTION [None]
  - LICHENOID KERATOSIS [None]
